FAERS Safety Report 6827204-2 (Version None)
Quarter: 2010Q3

REPORT INFORMATION
  Report Type: 
  Country: None (occurrence: None)
  Receive Date: 20100709
  Receipt Date: 20100701
  Transmission Date: 20110219
  Serious: Yes (Other)
  Sender: FDA-Public Use
  Company Number: ES-ALLERGAN-1008410US

PATIENT
  Age: 42 Year
  Sex: Male

DRUGS (1)
  1. VISCOFRESH 0.5% [Suspect]
     Indication: DRY EYE
     Dosage: UNK
     Route: 047
     Dates: start: 20030101

REACTIONS (4)
  - BURNING SENSATION [None]
  - CONJUNCTIVAL OEDEMA [None]
  - CORNEAL EROSION [None]
  - EYE IRRITATION [None]
